FAERS Safety Report 25048147 (Version 1)
Quarter: 2025Q1

REPORT INFORMATION
  Report Type: Spontaneous
  Country: CN (occurrence: CN)
  Receive Date: 20250306
  Receipt Date: 20250306
  Transmission Date: 20250408
  Serious: Yes (Death, Other)
  Sender: AMGEN
  Company Number: CN-AMGEN-CHNSP2025041440

PATIENT

DRUGS (2)
  1. XGEVA [Suspect]
     Active Substance: DENOSUMAB
     Indication: Bone giant cell tumour
     Dosage: 120 MILLIGRAM, QWK ON DAYS 1, 8, AND 15
     Route: 058
  2. XGEVA [Suspect]
     Active Substance: DENOSUMAB
     Dosage: 120 MILLIGRAM, QMO
     Route: 058

REACTIONS (6)
  - Bone giant cell tumour [Fatal]
  - Metastases to lung [Fatal]
  - Osteosarcoma [Unknown]
  - Infection [Unknown]
  - Osteoarthritis [Unknown]
  - Impaired healing [Unknown]
